FAERS Safety Report 10713031 (Version 1)
Quarter: 2015Q1

REPORT INFORMATION
  Report Type: Spontaneous
  Country: DE (occurrence: DE)
  Receive Date: 20150115
  Receipt Date: 20150115
  Transmission Date: 20150721
  Serious: Yes (Disabling, Congenital Anomaly)
  Sender: FDA-Public Use
  Company Number: DE-TEVA-533068GER

PATIENT
  Age: 1 Day
  Sex: Male

DRUGS (4)
  1. VENLAFAXINE [Suspect]
     Active Substance: VENLAFAXINE HYDROCHLORIDE
     Indication: DEPRESSION
     Dosage: 75 MILLIGRAM DAILY;
     Route: 064
  2. AMITRIPTYLINE [Suspect]
     Active Substance: AMITRIPTYLINE
     Indication: DEPRESSION
     Dosage: 10 MILLIGRAM DAILY;
     Route: 064
  3. DELIX [Suspect]
     Active Substance: RAMIPRIL
     Indication: FALLOT^S TETRALOGY
     Dosage: 1.25 MILLIGRAM DAILY;
     Route: 064
  4. GYNVITAL GRAVIDA [Concomitant]
     Active Substance: HERBALS
     Indication: PROPHYLAXIS OF NEURAL TUBE DEFECT
     Dosage: .4 MILLIGRAM DAILY;
     Route: 064

REACTIONS (7)
  - Atrial septal defect [Unknown]
  - Ventricular septal defect [Not Recovered/Not Resolved]
  - Talipes [Unknown]
  - Foetal exposure during pregnancy [Unknown]
  - Adactyly [Not Recovered/Not Resolved]
  - Small for dates baby [Unknown]
  - Limb reduction defect [Not Recovered/Not Resolved]

NARRATIVE: CASE EVENT DATE: 2014
